FAERS Safety Report 6925520-7 (Version None)
Quarter: 2010Q3

REPORT INFORMATION
  Report Type: 
  Country: None (occurrence: None)
  Receive Date: 20100816
  Receipt Date: 20100805
  Transmission Date: 20110219
  Serious: Yes (Other)
  Sender: FDA-Public Use
  Company Number: GB-NOVOPROD-273659

PATIENT
  Sex: Female

DRUGS (3)
  1. ACTRAPID [Suspect]
     Indication: DIABETES MELLITUS
  2. INSULATARD [Suspect]
     Indication: DIABETES MELLITUS
  3. HYPURIN [Suspect]
     Indication: DIABETES MELLITUS

REACTIONS (8)
  - ABDOMINAL DISTENSION [None]
  - ABDOMINAL PAIN UPPER [None]
  - CLUSTER HEADACHE [None]
  - LOSS OF CONSCIOUSNESS [None]
  - MOOD SWINGS [None]
  - NERVE INJURY [None]
  - OEDEMA PERIPHERAL [None]
  - WEIGHT INCREASED [None]
